FAERS Safety Report 7212276-6 (Version None)
Quarter: 2010Q4

REPORT INFORMATION
  Report Type: 
  Country: None (occurrence: None)
  Receive Date: 20101229
  Receipt Date: 20101215
  Transmission Date: 20110411
  Serious: Yes (Other)
  Sender: FDA-Public Use
  Company Number: GER/UKI/10/0016066

PATIENT
  Age: 58 Year
  Sex: Female
  Weight: 85 kg

DRUGS (8)
  1. OMEPRAZOLE [Suspect]
     Indication: GASTROOESOPHAGEAL REFLUX DISEASE
     Dosage: 10 MG, ORAL
     Route: 048
     Dates: start: 20061101, end: 20100625
  2. LANSOPRAZOLE [Suspect]
     Indication: GASTROOESOPHAGEAL REFLUX DISEASE
     Dosage: 30 MG, ORAL
     Route: 048
     Dates: start: 19980101, end: 20060801
  3. CITALOPRAM (CITALOPRAM) [Concomitant]
  4. DIGOXIN [Concomitant]
  5. IRBESARTAN [Concomitant]
  6. LOPERAMIDE [Concomitant]
  7. VERAPAMIL [Concomitant]
  8. WARFARIN (WARFARIN) [Concomitant]

REACTIONS (2)
  - DIARRHOEA [None]
  - HYPOMAGNESAEMIA [None]
